FAERS Safety Report 13740673 (Version 1)
Quarter: 2017Q3

REPORT INFORMATION
  Report Type: Spontaneous
  Country: US (occurrence: US)
  Receive Date: 20170711
  Receipt Date: 20170711
  Transmission Date: 20171127
  Serious: No
  Sender: FDA-Public Use
  Company Number: US-IPSEN BIOPHARMACEUTICALS, INC.-2014-5416

PATIENT
  Sex: Female
  Weight: 84 kg

DRUGS (10)
  1. CHLORELLA [Concomitant]
     Indication: PRODUCT USED FOR UNKNOWN INDICATION
     Dosage: NOT REPORTED
     Route: 065
  2. PHYTOCERAMIDE [Concomitant]
     Indication: PRODUCT USED FOR UNKNOWN INDICATION
     Dosage: NOT REPORTED
     Route: 065
  3. MELOXICAM. [Concomitant]
     Active Substance: MELOXICAM
     Indication: PRODUCT USED FOR UNKNOWN INDICATION
     Dosage: NOT REPORTED
     Route: 065
  4. SEA BUCKTHORN OIL [Concomitant]
     Indication: PRODUCT USED FOR UNKNOWN INDICATION
     Dosage: NOT REPORTED
     Route: 065
  5. DYSPORT [Suspect]
     Active Substance: ABOBOTULINUMTOXINA
     Indication: SKIN WRINKLING
     Dosage: NOT REPORTED
     Route: 065
     Dates: start: 20140819, end: 20140819
  6. MULTI-VITAMIN [Concomitant]
     Active Substance: .ALPHA.-TOCOPHEROL ACETATE, DL-\ASCORBIC ACID\CYANOCOBALAMIN\FLUORIDE ION\FOLIC ACID\NIACIN\PYRIDOXINE\RIBOFLAVIN\THIAMINE\VITAMIN A\VITAMIN D
     Indication: PRODUCT USED FOR UNKNOWN INDICATION
     Dosage: NOT REPORTED
     Route: 065
  7. ZINC. [Concomitant]
     Active Substance: ZINC
     Indication: PRODUCT USED FOR UNKNOWN INDICATION
     Dosage: NOT REPORTED
     Route: 065
  8. PROZAC [Concomitant]
     Active Substance: FLUOXETINE HYDROCHLORIDE
     Indication: PRODUCT USED FOR UNKNOWN INDICATION
     Dosage: NOT REPORTED
     Route: 065
  9. DYSPORT [Suspect]
     Active Substance: ABOBOTULINUMTOXINA
     Indication: PRODUCT USE IN UNAPPROVED INDICATION
  10. JUVEDERM X [Concomitant]
     Indication: SKIN WRINKLING
     Dosage: NOT REPORTED
     Route: 065
     Dates: start: 201408, end: 201408

REACTIONS (1)
  - Drug ineffective for unapproved indication [Unknown]
